FAERS Safety Report 12014223 (Version 10)
Quarter: 2018Q2

REPORT INFORMATION
  Report Type: Spontaneous
  Country: US (occurrence: US)
  Receive Date: 20160205
  Receipt Date: 20180403
  Transmission Date: 20180711
  Serious: Yes (Hospitalization, Other)
  Sender: FDA-Public Use
  Company Number: US-SA-2016SA020960

PATIENT
  Age: 20 Year
  Sex: Male

DRUGS (4)
  1. CEREZYME [Suspect]
     Active Substance: IMIGLUCERASE
     Indication: GAUCHER^S DISEASE
     Dosage: DOSE:4800 UNIT(S)
     Route: 041
  2. CEREZYME [Suspect]
     Active Substance: IMIGLUCERASE
     Indication: GAUCHER^S DISEASE
     Dosage: DOSE:4800 UNIT(S)
     Route: 041
  3. CEREZYME [Suspect]
     Active Substance: IMIGLUCERASE
     Indication: GAUCHER^S DISEASE
     Dosage: DOSE:4800 UNIT(S)
     Route: 041
     Dates: start: 20100413
  4. DEPAKOTE [Suspect]
     Active Substance: DIVALPROEX SODIUM
     Route: 065

REACTIONS (18)
  - Joint injury [Unknown]
  - Limb injury [Unknown]
  - Seizure [Unknown]
  - Respiratory tract infection [Unknown]
  - Cognitive disorder [Not Recovered/Not Resolved]
  - Body height below normal [Not Recovered/Not Resolved]
  - Lethargy [Unknown]
  - Visual impairment [Unknown]
  - Generalised tonic-clonic seizure [Unknown]
  - Oedema peripheral [Unknown]
  - Encephalopathy [Not Recovered/Not Resolved]
  - Pneumonia [Unknown]
  - Swelling face [Unknown]
  - Respiratory tract congestion [Unknown]
  - Respiratory disorder [Unknown]
  - Hyperammonaemia [Not Recovered/Not Resolved]
  - Abdominal distension [Unknown]
  - Fall [Unknown]

NARRATIVE: CASE EVENT DATE: 20160720
